FAERS Safety Report 25509338 (Version 5)
Quarter: 2025Q4

REPORT INFORMATION
  Report Type: Report from Study
  Country: US (occurrence: US)
  Receive Date: 20250703
  Receipt Date: 20251224
  Transmission Date: 20260118
  Serious: No
  Sender: PFIZER
  Company Number: US-PFIZER INC-202400303096

PATIENT
  Age: 74 Year
  Sex: Female
  Weight: 81.542 kg

DRUGS (4)
  1. IBRANCE [Suspect]
     Active Substance: PALBOCICLIB
     Indication: Metastases to bone
     Dosage: 100 MG, CYCLIC (1 TABLET DAILY, ADMINISTER ON DAYS 1 THROUGH 21, THEN 7 DAYS OFF OF A 28-DAY CYCLE)
     Route: 048
     Dates: start: 20241022
  2. IBRANCE [Suspect]
     Active Substance: PALBOCICLIB
     Dosage: 125 MG, CYCLIC
     Route: 048
  3. IBRANCE [Suspect]
     Active Substance: PALBOCICLIB
     Dosage: 100 MG, CYCLIC (1 TABLET DAILY, ADMINISTER ON DAYS 1 THROUGH 21, THEN 7 DAYS OFF)
     Route: 048
  4. IBRANCE [Suspect]
     Active Substance: PALBOCICLIB
     Dosage: 100 MG

REACTIONS (4)
  - Illness [Unknown]
  - Urticaria [Unknown]
  - Nasopharyngitis [Unknown]
  - Fatigue [Unknown]
